FAERS Safety Report 11574565 (Version 1)
Quarter: 2015Q3

REPORT INFORMATION
  Report Type: Spontaneous
  Country: US (occurrence: None)
  Receive Date: 20150928
  Receipt Date: 20150928
  Transmission Date: 20151125
  Serious: No
  Sender: FDA-Public Use
  Company Number: None

PATIENT
  Age: 35 Year
  Sex: Female
  Weight: 117.48 kg

DRUGS (5)
  1. ALPRAZOLAM. [Concomitant]
     Active Substance: ALPRAZOLAM
  2. SERTRALINE [Concomitant]
     Active Substance: SERTRALINE HYDROCHLORIDE
  3. VITAMIN D [Concomitant]
     Active Substance: CHOLECALCIFEROL
  4. IBRUPROFIN [Concomitant]
  5. ESSURE [Suspect]
     Active Substance: DEVICE

REACTIONS (39)
  - Muscle spasms [None]
  - Arthralgia [None]
  - Paraesthesia [None]
  - Influenza [None]
  - Alopecia [None]
  - Abdominal distension [None]
  - Cerebrovascular accident [None]
  - Vitamin D deficiency [None]
  - Migraine [None]
  - Hypoaesthesia [None]
  - Depressed level of consciousness [None]
  - Dizziness [None]
  - Endometriosis [None]
  - Night sweats [None]
  - Breast pain [None]
  - Dysgeusia [None]
  - Dyspepsia [None]
  - Hypoglycaemia [None]
  - Hair growth abnormal [None]
  - Dry skin [None]
  - Fatigue [None]
  - Abdominal rigidity [None]
  - Nausea [None]
  - Increased tendency to bruise [None]
  - Libido disorder [None]
  - Pelvic pain [None]
  - Constipation [None]
  - Depression [None]
  - Mood swings [None]
  - Sleep disorder [None]
  - Menstrual disorder [None]
  - Acne [None]
  - Anxiety [None]
  - Weight increased [None]
  - Dysmenorrhoea [None]
  - Pollakiuria [None]
  - Flatulence [None]
  - Tinnitus [None]
  - Blister [None]

NARRATIVE: CASE EVENT DATE: 20150715
